FAERS Safety Report 17910784 (Version 11)
Quarter: 2022Q2

REPORT INFORMATION
  Report Type: Other
  Country: CA (occurrence: None)
  Receive Date: 20200618
  Receipt Date: 20220617
  Transmission Date: 20220721
  Serious: Yes (Other)
  Sender: FDA-Public Use
  Company Number: CA-ROCHE-2490897

PATIENT
  Sex: Male

DRUGS (14)
  1. OCREVUS [Suspect]
     Active Substance: OCRELIZUMAB
     Indication: Primary progressive multiple sclerosis
     Dosage: CONCENTRATE FOR INTRAVENOUS INFUSION
     Route: 042
     Dates: start: 20190416
  2. OCREVUS [Suspect]
     Active Substance: OCRELIZUMAB
     Dosage: CONCENTRATE FOR INTRAVENOUS INFUSION
     Route: 042
     Dates: start: 20190416
  3. DEXILANT [Concomitant]
     Active Substance: DEXLANSOPRAZOLE
     Dosage: EVERY OTHER DAY ;ONGOING: YES
  4. CHLOROQUINE [Concomitant]
     Active Substance: CHLOROQUINE
  5. SOLIFENACIN [Concomitant]
     Active Substance: SOLIFENACIN
  6. BACLOFEN [Concomitant]
     Active Substance: BACLOFEN
  7. ATORVASTATIN [Concomitant]
     Active Substance: ATORVASTATIN
     Dosage: EVERY OTHER DAY ;ONGOING: YES
  8. CANDESARTAN [Concomitant]
     Active Substance: CANDESARTAN
  9. CALCIUM [Concomitant]
     Active Substance: CALCIUM
  10. COENZYME Q10 [Concomitant]
     Active Substance: DIETARY SUPPLEMENT\UBIDECARENONE
  11. BIOTIN [Concomitant]
     Active Substance: BIOTIN
  12. DALFAMPRIDINE [Concomitant]
     Active Substance: DALFAMPRIDINE
  13. OCUVITE [Concomitant]
     Active Substance: VITAMINS
  14. SOLU-MEDROL [Concomitant]
     Active Substance: METHYLPREDNISOLONE SODIUM SUCCINATE
     Route: 042

REACTIONS (9)
  - Visual impairment [Unknown]
  - Cellulitis [Recovering/Resolving]
  - Gait disturbance [Unknown]
  - Drug ineffective [Unknown]
  - Lymphocyte count decreased [Not Recovered/Not Resolved]
  - Tinnitus [Unknown]
  - Gait disturbance [Not Recovered/Not Resolved]
  - Mobility decreased [Not Recovered/Not Resolved]
  - Asthenia [Not Recovered/Not Resolved]
